FAERS Safety Report 7213508-0 (Version None)
Quarter: 2011Q1

REPORT INFORMATION
  Report Type: 
  Country: None (occurrence: None)
  Receive Date: 20110106
  Receipt Date: 20110104
  Transmission Date: 20110831
  Serious: Yes (Hospitalization)
  Sender: FDA-Public Use
  Company Number: US-JNJFOC-20100608586

PATIENT
  Sex: Female

DRUGS (4)
  1. CHILDREN'S MOTRIN [Suspect]
     Indication: PYREXIA
     Route: 048
  2. CHILDREN'S TYLENOL SUSPENSION [Suspect]
     Route: 048
  3. CHILDREN'S TYLENOL SUSPENSION [Suspect]
     Indication: PYREXIA
     Route: 048
  4. CHILDREN'S MOTRIN [Suspect]
     Route: 048

REACTIONS (4)
  - CONVULSION [None]
  - DRUG INEFFECTIVE [None]
  - CHILLS [None]
  - PRODUCT QUALITY ISSUE [None]
